FAERS Safety Report 10833649 (Version 2)
Quarter: 2015Q2

REPORT INFORMATION
  Report Type: Spontaneous
  Country: US (occurrence: US)
  Receive Date: 20150219
  Receipt Date: 20150612
  Transmission Date: 20150821
  Serious: Yes (Life-Threatening, Hospitalization)
  Sender: FDA-Public Use
  Company Number: US-BAYER-2015-025524

PATIENT
  Age: 28 Year
  Sex: Female
  Weight: 54 kg

DRUGS (1)
  1. MIRENA [Suspect]
     Active Substance: LEVONORGESTREL
     Indication: CONTRACEPTION
     Dosage: 20 MCG/24HR, CONT
     Route: 015
     Dates: start: 20080430, end: 20120215

REACTIONS (6)
  - General physical health deterioration [None]
  - Uterine perforation [None]
  - Injury [None]
  - Off label use of device [None]
  - Pain [None]
  - Menstrual disorder [None]

NARRATIVE: CASE EVENT DATE: 2012
